FAERS Safety Report 5583629-7 (Version None)
Quarter: 2007Q4

REPORT INFORMATION
  Report Type: 
  Country: None (occurrence: None)
  Receive Date: 20071231
  Receipt Date: 20071217
  Transmission Date: 20080405
  Serious: Yes (Hospitalization)
  Sender: FDA-Public Use
  Company Number: 2007BI020307

PATIENT
  Age: 48 Year
  Sex: Female
  Weight: 60.3284 kg

DRUGS (3)
  1. AVONEX [Suspect]
     Indication: MULTIPLE SCLEROSIS
     Dosage: 30 UG; QW; IM
     Route: 030
     Dates: start: 19960901, end: 20030101
  2. AVONEX [Suspect]
     Indication: MULTIPLE SCLEROSIS
     Dosage: 30 UG; QW; IM
     Route: 030
     Dates: start: 20030101
  3. INSULIN PUMP [Concomitant]

REACTIONS (5)
  - BLOOD GLUCOSE INCREASED [None]
  - BONE GRAFT [None]
  - CONDITION AGGRAVATED [None]
  - FRACTURE NONUNION [None]
  - MULTIPLE SCLEROSIS [None]
